FAERS Safety Report 13364374 (Version 1)
Quarter: 2017Q1

REPORT INFORMATION
  Report Type: Spontaneous
  Country: CN (occurrence: CN)
  Receive Date: 20170323
  Receipt Date: 20170323
  Transmission Date: 20170429
  Serious: Yes (Life-Threatening)
  Sender: FDA-Public Use
  Company Number: CN-FRESENIUS KABI-FK201702291

PATIENT
  Age: 52 Year
  Sex: Female

DRUGS (1)
  1. INTRALIPID [Suspect]
     Active Substance: EGG PHOSPHOLIPIDS\GLYCERIN\SOYBEAN OIL
     Indication: NUTRITIONAL SUPPLEMENTATION
     Route: 041
     Dates: start: 20161129, end: 20161130

REACTIONS (4)
  - Headache [Recovering/Resolving]
  - Blood pressure increased [Recovering/Resolving]
  - Loss of consciousness [Recovering/Resolving]
  - Pupils unequal [Recovering/Resolving]

NARRATIVE: CASE EVENT DATE: 20161129
